FAERS Safety Report 25864187 (Version 1)
Quarter: 2025Q3

REPORT INFORMATION
  Report Type: Spontaneous
  Country: EU (occurrence: EU)
  Receive Date: 20250930
  Receipt Date: 20250930
  Transmission Date: 20251021
  Serious: Yes (Other)
  Sender: AMGEN
  Company Number: EU-AMGEN-PRTSP2025190846

PATIENT
  Age: 31 Year
  Sex: Female

DRUGS (3)
  1. ADALIMUMAB [Suspect]
     Active Substance: ADALIMUMAB
     Indication: Crohn^s disease
     Route: 065
  2. USTEKINUMAB [Suspect]
     Active Substance: USTEKINUMAB
     Indication: Crohn^s disease
     Route: 065
  3. INFLIXIMAB [Concomitant]
     Active Substance: INFLIXIMAB
     Indication: Crohn^s disease

REACTIONS (9)
  - Crohn^s disease [Recovered/Resolved]
  - Therapy non-responder [Unknown]
  - Nasal obstruction [Recovered/Resolved]
  - Vestibulitis [Recovered/Resolved]
  - Angular cheilitis [Recovered/Resolved]
  - Aphthous ulcer [Recovered/Resolved]
  - Dry mouth [Unknown]
  - Skin exfoliation [Unknown]
  - Nasal dryness [Unknown]
